FAERS Safety Report 5289396-9 (Version None)
Quarter: 2007Q2

REPORT INFORMATION
  Report Type: 
  Country: None (occurrence: None)
  Receive Date: 20070406
  Receipt Date: 20070329
  Transmission Date: 20071010
  Serious: Yes (Hospitalization)
  Sender: FDA-Public Use
  Company Number: PHNR2007AU00718

PATIENT
  Age: 76 Year
  Sex: Female

DRUGS (10)
  1. STALEVO 100 [Suspect]
     Indication: PARKINSON'S DISEASE
     Dosage: UNK, QD
     Route: 048
     Dates: start: 20060129
  2. LEXAPRO [Concomitant]
  3. LASIX [Concomitant]
  4. LANOXIN [Concomitant]
  5. ZOTON [Concomitant]
  6. ZOCOR [Concomitant]
  7. SINEMET CR [Concomitant]
  8. CABASER [Concomitant]
  9. DIAZEPAM [Concomitant]
  10. WARFARIN SODIUM [Concomitant]

REACTIONS (4)
  - AMNESIA [None]
  - CONFUSIONAL STATE [None]
  - FALL [None]
  - HALLUCINATION [None]
